FAERS Safety Report 17421413 (Version 2)
Quarter: 2024Q2

REPORT INFORMATION
  Report Type: Report from Study
  Country: US (occurrence: US)
  Receive Date: 20200214
  Receipt Date: 20240425
  Transmission Date: 20240716
  Serious: Yes (Hospitalization)
  Sender: FDA-Public Use
  Company Number: US-NOVARTISPH-NVSC2020US040933

PATIENT
  Age: 5 Year
  Sex: Male

DRUGS (13)
  1. ZOLGENSMA [Suspect]
     Active Substance: ONASEMNOGENE ABEPARVOVEC-XIOI
     Indication: Spinal muscular atrophy
     Dosage: 2.0 X 10^14 VG/KG, ONCE/SINGLE
     Route: 042
     Dates: start: 20150120
  2. CALCIUM CARBONATE [Concomitant]
     Active Substance: CALCIUM CARBONATE
     Indication: Nutritional supplementation
     Dosage: 750 MG
     Route: 048
     Dates: start: 20171018
  3. MOTRIN [Concomitant]
     Active Substance: IBUPROFEN
     Indication: Pyrexia
     Dosage: UNK
     Route: 065
  4. MOTRIN [Concomitant]
     Active Substance: IBUPROFEN
     Indication: Pain
  5. SODIUM CHLORIDE [Concomitant]
     Active Substance: SODIUM CHLORIDE
     Indication: Pulmonary congestion
     Dosage: 780 %, Q2H
     Route: 045
  6. SODIUM CHLORIDE [Concomitant]
     Active Substance: SODIUM CHLORIDE
     Indication: Wheezing
  7. SODIUM CHLORIDE [Concomitant]
     Active Substance: SODIUM CHLORIDE
     Indication: Dyspnoea
  8. MIRALAX [Concomitant]
     Active Substance: POLYETHYLENE GLYCOL 3350
     Indication: Constipation
     Dosage: 17 G, PRN
     Route: 048
     Dates: start: 20171018
  9. VITAMIN D [Concomitant]
     Active Substance: VITAMIN D NOS
     Indication: Nutritional supplementation
     Dosage: 400 U, QD
     Route: 048
     Dates: start: 20171018
  10. NUSINERSEN [Concomitant]
     Active Substance: NUSINERSEN
     Indication: Spinal muscular atrophy
     Dosage: 12 MG, QD
     Route: 037
     Dates: start: 20171012
  11. VITAMINS [Concomitant]
     Active Substance: VITAMINS
     Indication: Nutritional supplementation
     Dosage: 1 DF, QD
     Route: 048
     Dates: start: 20171020
  12. SENOKOT [Concomitant]
     Active Substance: SENNOSIDES
     Indication: Constipation
     Dosage: 8.80 MG, QD
     Route: 048
     Dates: start: 20171208
  13. OMNICEF [Concomitant]
     Active Substance: CEFDINIR
     Indication: Otitis media acute
     Dosage: 4 ML, QD
     Route: 048
     Dates: start: 20180226, end: 20180307

REACTIONS (6)
  - Hypophagia [Unknown]
  - Respiratory distress [Recovered/Resolved]
  - Tonsillar hypertrophy [Unknown]
  - Hypoglycaemia [Unknown]
  - Adenovirus infection [Unknown]
  - Hepatic enzyme increased [Unknown]

NARRATIVE: CASE EVENT DATE: 20150301
